FAERS Safety Report 19086823 (Version 2)
Quarter: 2021Q2

REPORT INFORMATION
  Report Type: Report from Study
  Country: CO (occurrence: CO)
  Receive Date: 20210402
  Receipt Date: 20210408
  Transmission Date: 20210717
  Serious: Yes (Death, Other)
  Sender: FDA-Public Use
  Company Number: CO-BRISTOL-MYERS SQUIBB COMPANY-BMS-2021-031606

PATIENT
  Age: 67 Year
  Sex: Male
  Weight: 49 kg

DRUGS (1)
  1. NIVOLUMAB [Suspect]
     Active Substance: NIVOLUMAB
     Indication: MALIGNANT MELANOMA
     Dosage: 49 MILLIGRAM, Q3WK
     Route: 042
     Dates: start: 20201104

REACTIONS (3)
  - Off label use [Unknown]
  - Death [Fatal]
  - Product availability issue [Unknown]

NARRATIVE: CASE EVENT DATE: 20210328
